FAERS Safety Report 9594648 (Version 1)
Quarter: 2013Q3

REPORT INFORMATION
  Report Type: Spontaneous
  Country: US (occurrence: None)
  Receive Date: 20130927
  Receipt Date: 20130927
  Transmission Date: 20140515
  Serious: Yes (Hospitalization, Other)
  Sender: FDA-Public Use
  Company Number: RB-55684-2013

PATIENT
  Age: 25 Year
  Sex: Female

DRUGS (1)
  1. SUBOXONE [Suspect]
     Dosage: (SUBOXONE  FILM ; DOSING DETAILS UNKNOWN SUBLINGUAL) , 1 MG . MEDICALLY SUPERVISED TAPER SUBLINGUAL )
     Route: 060
     Dates: start: 201212, end: 20130618

REACTIONS (5)
  - Vomiting [None]
  - Dehydration [None]
  - Wrong technique in drug usage process [None]
  - Muscle spasms [None]
  - Drug withdrawal syndrome [None]
